FAERS Safety Report 17052720 (Version 1)
Quarter: 2019Q4

REPORT INFORMATION
  Report Type: Spontaneous
  Country: US (occurrence: US)
  Receive Date: 20191120
  Receipt Date: 20191120
  Transmission Date: 20200122
  Serious: Yes (Hospitalization, Other)
  Sender: FDA-Public Use
  Company Number: NVSC2019US038902

PATIENT
  Sex: Female
  Weight: 86.1 kg

DRUGS (1)
  1. ENTRESTO [Suspect]
     Active Substance: SACUBITRIL\VALSARTAN
     Indication: CARDIAC DISORDER
     Dosage: 50 (24/26)MG, BID
     Route: 048
     Dates: start: 201910

REACTIONS (6)
  - Atrial fibrillation [Unknown]
  - Vomiting [Unknown]
  - Product use in unapproved indication [Unknown]
  - Fluid retention [Unknown]
  - Blood pressure decreased [Unknown]
  - Urinary tract infection [Unknown]
